FAERS Safety Report 9199868 (Version 1)
Quarter: 2013Q1

REPORT INFORMATION
  Report Type: Spontaneous
  Country: US (occurrence: US)
  Receive Date: 20130329
  Receipt Date: 20130329
  Transmission Date: 20140127
  Serious: No
  Sender: FDA-Public Use
  Company Number: US-GALDERMA-US12416013

PATIENT
  Age: 55 Year
  Sex: Female

DRUGS (3)
  1. DIFFERIN [Suspect]
     Indication: ACNE
     Route: 061
     Dates: start: 201006
  2. FOAMING FACIAL CLEANSER FOR SENSITIVE SKIN [Concomitant]
     Route: 061
  3. MOISTURIZER [Concomitant]
     Route: 061

REACTIONS (3)
  - Dry skin [Not Recovered/Not Resolved]
  - Skin exfoliation [Not Recovered/Not Resolved]
  - Drug ineffective [Not Recovered/Not Resolved]
